FAERS Safety Report 12401630 (Version 1)
Quarter: 2016Q2

REPORT INFORMATION
  Report Type: Spontaneous
  Country: IL (occurrence: IL)
  Receive Date: 20160525
  Receipt Date: 20160525
  Transmission Date: 20160815
  Serious: Yes (Hospitalization)
  Sender: FDA-Public Use
  Company Number: IL-NOVOPROD-484816

PATIENT
  Age: 13 Year
  Sex: Female

DRUGS (2)
  1. TREGLUDEC [Suspect]
     Active Substance: INSULIN DEGLUDEC
     Indication: TYPE 1 DIABETES MELLITUS
     Dosage: 15 U
     Route: 065
     Dates: start: 20160117, end: 20160313
  2. TREGLUDEC [Suspect]
     Active Substance: INSULIN DEGLUDEC
     Dosage: 18 U, QD
     Route: 065
     Dates: start: 20160313

REACTIONS (4)
  - Vomiting [Recovered/Resolved]
  - Drug ineffective [Unknown]
  - Wrong technique in product usage process [Unknown]
  - Blood glucose increased [Unknown]
